FAERS Safety Report 24326022 (Version 3)
Quarter: 2024Q4

REPORT INFORMATION
  Report Type: Spontaneous
  Country: CO (occurrence: CO)
  Receive Date: 20240917
  Receipt Date: 20241023
  Transmission Date: 20250115
  Serious: Yes (Disabling, Other)
  Sender: SANDOZ
  Company Number: CO-SANDOZ-NVSC2022CO232430

PATIENT
  Sex: Female
  Weight: 89 kg

DRUGS (6)
  1. ATORVASTATIN [Suspect]
     Active Substance: ATORVASTATIN
     Indication: Hypertension
     Dosage: UNK
     Route: 065
  2. GABAPENTIN [Suspect]
     Active Substance: GABAPENTIN
     Indication: Product used for unknown indication
     Dosage: 1 CAPSULE EVERY 12 HOURS
     Route: 065
  3. ROSUVASTATIN [Suspect]
     Active Substance: ROSUVASTATIN
     Indication: Product used for unknown indication
     Dosage: 1 TABLET PER DAY
     Route: 065
  4. TASIGNA [Suspect]
     Active Substance: NILOTINIB
     Indication: Chronic myeloid leukaemia
     Dosage: 300 MG, Q12H
     Route: 048
     Dates: start: 20220620
  5. TASIGNA [Suspect]
     Active Substance: NILOTINIB
     Dosage: 300 MG, Q12H
     Route: 048
     Dates: start: 20221026
  6. TASIGNA [Suspect]
     Active Substance: NILOTINIB
     Dosage: UNK
     Route: 065

REACTIONS (22)
  - Arteriosclerosis [Not Recovered/Not Resolved]
  - Polyneuropathy [Unknown]
  - Neuropathy peripheral [Not Recovered/Not Resolved]
  - Balance disorder [Not Recovered/Not Resolved]
  - Skin disorder [Unknown]
  - Influenza [Unknown]
  - Depressed mood [Unknown]
  - Inflammation [Unknown]
  - Osteoarthritis [Unknown]
  - Neuritis [Unknown]
  - Blood cholesterol increased [Unknown]
  - Investigation abnormal [Unknown]
  - Weight decreased [Unknown]
  - Gait inability [Unknown]
  - Hypertension [Unknown]
  - Muscle spasms [Not Recovered/Not Resolved]
  - Pruritus [Unknown]
  - Alopecia [Unknown]
  - Pain in extremity [Unknown]
  - Weight increased [Unknown]
  - Hypoaesthesia [Unknown]
  - Product distribution issue [Unknown]
